FAERS Safety Report 4975130-6 (Version None)
Quarter: 2006Q2

REPORT INFORMATION
  Report Type: 
  Country: None (occurrence: None)
  Receive Date: 20060418
  Receipt Date: 20060412
  Transmission Date: 20061013
  Serious: Yes (Hospitalization)
  Sender: FDA-Public Use
  Company Number: US-SP-2006-00857

PATIENT
  Age: 85 Year
  Sex: Male

DRUGS (1)
  1. THERACYS [Suspect]
     Indication: BLADDER CANCER
     Route: 065
     Dates: start: 20060322

REACTIONS (4)
  - BACILLUS INFECTION [None]
  - BOVINE TUBERCULOSIS [None]
  - PYREXIA [None]
  - SEPSIS [None]
